FAERS Safety Report 19746198 (Version 1)
Quarter: 2021Q3

REPORT INFORMATION
  Report Type: Spontaneous
  Country: BR (occurrence: BR)
  Receive Date: 20210825
  Receipt Date: 20210825
  Transmission Date: 20211014
  Serious: Yes (Hospitalization, Other)
  Sender: FDA-Public Use
  Company Number: BR-ASTRAZENECA-2021A690292

PATIENT
  Sex: Female

DRUGS (2)
  1. XIGDUO XR [Suspect]
     Active Substance: DAPAGLIFLOZIN PROPANEDIOL\METFORMIN HYDROCHLORIDE
     Dosage: 5/1000MG
     Route: 048
  2. COVID?19 VACCINE [Concomitant]
     Route: 065
     Dates: start: 202105

REACTIONS (5)
  - Finger amputation [Recovered/Resolved]
  - Peripheral swelling [Not Recovered/Not Resolved]
  - Limb injury [Recovered/Resolved]
  - Erythema [Not Recovered/Not Resolved]
  - Fall [Recovered/Resolved]

NARRATIVE: CASE EVENT DATE: 20201210
